FAERS Safety Report 18431855 (Version 3)
Quarter: 2021Q1

REPORT INFORMATION
  Report Type: Report from Study
  Country: US (occurrence: US)
  Receive Date: 20201027
  Receipt Date: 20210129
  Transmission Date: 20210419
  Serious: Yes (Other)
  Sender: FDA-Public Use
  Company Number: US-BRISTOL-MYERS SQUIBB COMPANY-BMS-2020-079196

PATIENT
  Age: 48 Year
  Sex: Male
  Weight: 116.5 kg

DRUGS (5)
  1. BENADRYL [Concomitant]
     Active Substance: DIPHENHYDRAMINE HYDROCHLORIDE
     Indication: PREMEDICATION
     Dosage: 25 MILLIGRAM, QD
     Route: 042
     Dates: start: 20200930, end: 20200930
  2. NIVOLUMAB [Suspect]
     Active Substance: NIVOLUMAB
     Indication: RENAL CELL CARCINOMA
     Dosage: 100 MILLIGRAM
     Route: 042
     Dates: start: 20200902
  3. PEPCID [Concomitant]
     Active Substance: FAMOTIDINE
     Indication: PREMEDICATION
     Dosage: 20 MILLIGRAM, QD
     Route: 042
     Dates: start: 20200930, end: 20200930
  4. NIVOLUMAB [Suspect]
     Active Substance: NIVOLUMAB
     Dosage: 340 MILLIGRAM, Q3WK
     Route: 042
     Dates: start: 20200930, end: 20200930
  5. NIVOLUMAB [Suspect]
     Active Substance: NIVOLUMAB
     Dosage: 240 MILLIGRAM
     Route: 042
     Dates: end: 20200930

REACTIONS (4)
  - Intentional product use issue [Unknown]
  - Hypersensitivity [Recovered/Resolved]
  - Back pain [Recovered/Resolved]
  - Myalgia [Recovered/Resolved]

NARRATIVE: CASE EVENT DATE: 20200902
